FAERS Safety Report 21598169 (Version 2)
Quarter: 2022Q4

REPORT INFORMATION
  Report Type: Spontaneous
  Country: IN (occurrence: IN)
  Receive Date: 20221115
  Receipt Date: 20221201
  Transmission Date: 20230113
  Serious: Yes (Other)
  Sender: FDA-Public Use
  Company Number: IN-PFIZER INC-2021831189

PATIENT
  Age: 59 Year
  Sex: Female

DRUGS (6)
  1. PALBOCICLIB [Suspect]
     Active Substance: PALBOCICLIB
     Indication: Breast cancer metastatic
     Dosage: 75 MG, 1X/DAY
     Route: 048
     Dates: start: 20210420
  2. Letroze [Concomitant]
     Dosage: UNK
  3. CRESP [Concomitant]
     Indication: Anaemia of chronic disease
     Dosage: UNK
  4. ZOLASTA [Concomitant]
     Dosage: UNK
  5. ZOLASTA [Concomitant]
     Dosage: UNK, MONTHLY
  6. CALPOL [Concomitant]
     Active Substance: ACETAMINOPHEN
     Dosage: UNK

REACTIONS (14)
  - Blood bilirubin increased [Unknown]
  - Bilirubin conjugated increased [Unknown]
  - Hyperhidrosis [Unknown]
  - Skin disorder [Unknown]
  - Paraesthesia [Unknown]
  - Pruritus [Unknown]
  - Bone lesion [Unknown]
  - Pain in extremity [Unknown]
  - Hypoaesthesia [Unknown]
  - Pallor [Unknown]
  - Haemoglobin decreased [Unknown]
  - White blood cell count decreased [Unknown]
  - Platelet count abnormal [Unknown]
  - Neutrophil count increased [Unknown]
